FAERS Safety Report 6260850-6 (Version None)
Quarter: 2009Q3

REPORT INFORMATION
  Report Type: 
  Country: None (occurrence: None)
  Receive Date: 20090707
  Receipt Date: 20090622
  Transmission Date: 20100115
  Serious: No
  Sender: FDA-Public Use
  Company Number: CERZ-1000632

PATIENT
  Age: 22 Year
  Sex: Female
  Weight: 58 kg

DRUGS (1)
  1. CEREZYME [Suspect]
     Indication: GAUCHER'S DISEASE
     Dosage: 30 U/KG, Q2W, INTRAVENOUS
; 15 U/KG, Q2W, INTRAVENOUS
     Route: 042

REACTIONS (10)
  - ABORTION COMPLETE [None]
  - ARTHRALGIA [None]
  - BLOOD LACTATE DEHYDROGENASE INCREASED [None]
  - BONE DISORDER [None]
  - BONE INFARCTION [None]
  - BONE PAIN [None]
  - C-REACTIVE PROTEIN INCREASED [None]
  - CAESAREAN SECTION [None]
  - PREGNANCY [None]
  - RED BLOOD CELL SEDIMENTATION RATE INCREASED [None]
